FAERS Safety Report 7314029-7 (Version None)
Quarter: 2011Q1

REPORT INFORMATION
  Report Type: 
  Country: None (occurrence: None)
  Receive Date: 20110225
  Receipt Date: 20110217
  Transmission Date: 20110831
  Serious: Yes (Other)
  Sender: FDA-Public Use
  Company Number: US-ABBOTT-11P-163-0706239-00

PATIENT
  Sex: Female
  Weight: 81.72 kg

DRUGS (1)
  1. HUMIRA [Suspect]
     Indication: RHEUMATOID ARTHRITIS
     Dates: start: 20050101

REACTIONS (12)
  - IMPAIRED HEALING [None]
  - BLOOD CALCIUM DECREASED [None]
  - NASOPHARYNGITIS [None]
  - ARTHRALGIA [None]
  - TRIGEMINAL NEURALGIA [None]
  - VITAMIN D DECREASED [None]
  - VIRAL INFECTION [None]
  - BURNING SENSATION [None]
  - HEADACHE [None]
  - RHINORRHOEA [None]
  - FOOT DEFORMITY [None]
  - NASAL CONGESTION [None]
